FAERS Safety Report 5382348-X (Version None)
Quarter: 2007Q3

REPORT INFORMATION
  Report Type: 
  Country: None (occurrence: None)
  Receive Date: 20070709
  Receipt Date: 20070709
  Transmission Date: 20080115
  Serious: Yes (Hospitalization)
  Sender: FDA-Public Use
  Company Number: ES-ABBOTT-07P-144-0372915-00

PATIENT
  Sex: Female
  Weight: 52 kg

DRUGS (6)
  1. HUMIRA [Suspect]
     Indication: JUVENILE ARTHRITIS
     Route: 058
     Dates: start: 20031222
  2. IBUPROFEN [Concomitant]
     Indication: JUVENILE ARTHRITIS
     Route: 048
     Dates: start: 20030501
  3. LEVOFLOXACIN [Concomitant]
     Indication: ABSCESS
     Dates: start: 20060504, end: 20060511
  4. LEVOFLOXACIN [Concomitant]
     Dates: start: 20060208, end: 20060225
  5. ISOTRETINOIN [Concomitant]
     Indication: ACNE
     Dates: start: 20051111
  6. AMOXICILINA + CLAVULANICO [Concomitant]
     Indication: URINARY TRACT INFECTION
     Dates: start: 20070121, end: 20070131

REACTIONS (1)
  - SCAR EXCISION [None]
